FAERS Safety Report 4438918-6 (Version None)
Quarter: 2004Q3

REPORT INFORMATION
  Report Type: 
  Country: None (occurrence: None)
  Receive Date: 20040830
  Receipt Date: 20040817
  Transmission Date: 20050211
  Serious: Yes (Other)
  Sender: FDA-Public Use
  Company Number: S04-GER-02983-01

PATIENT
  Sex: Male

DRUGS (3)
  1. CIPRALEX (ESCITALOPRAM) [Suspect]
     Dosage: 10 MG QD
  2. CIPRALEX (ESCITALOPRAM) [Suspect]
     Dosage: 5 MG QD
  3. CIPRALEX (ESCITALOPRAM) [Suspect]

REACTIONS (1)
  - CONVULSION [None]
